FAERS Safety Report 9785831 (Version 1)
Quarter: 2013Q4

REPORT INFORMATION
  Report Type: Spontaneous
  Country: CN (occurrence: None)
  Receive Date: 20131223
  Receipt Date: 20131223
  Transmission Date: 20140711
  Serious: Yes (Other)
  Sender: FDA-Public Use
  Company Number: 2013CN00828

PATIENT
  Sex: 0

DRUGS (6)
  1. EPIRUBICIN [Suspect]
     Indication: OVARIAN EPITHELIAL CANCER RECURRENT
     Dosage: 50A ^60MG/M2, ON THE FIRST DAY, IV DRIP
  2. IFOSFAMIDE (IFOSFAMIDE) [Suspect]
     Indication: OVARIAN EPITHELIAL CANCER RECURRENT
     Dosage: 3-4 G/M2, OVER 3 HOURS ON THE FIRST DAY, IV DRIP
  3. MESNA [Suspect]
     Indication: OVARIAN EPITHELIAL CANCER RECURRENT
     Dosage: 0.8 G/M2, AT 0, 4 AND 8 HOURS AFTER CHEMOTHERAPY ON THE FIRST/SECOND DAY, INTRAVENOUS
  4. OXALIPLATIN (OXALIPLATIN) [Suspect]
     Indication: OVARIAN EPITHELIAL CANCER RECURRENT
     Dosage: 130 MG/M2, OVER 2 HOURS ON THE FIRST DAY, IV DRIP
  5. DEXAMETHASONE [Concomitant]
  6. ZUDAN (ONDANSETRON) [Concomitant]

REACTIONS (1)
  - Venous thrombosis [None]
